FAERS Safety Report 12896360 (Version 1)
Quarter: 2016Q4

REPORT INFORMATION
  Report Type: Spontaneous
  Country: US (occurrence: US)
  Receive Date: 20161031
  Receipt Date: 20161031
  Transmission Date: 20170207
  Serious: No
  Sender: FDA-Public Use
  Company Number: US-JAZZ-2016-US-016593

PATIENT
  Sex: Male

DRUGS (33)
  1. BACLOFEN. [Concomitant]
     Active Substance: BACLOFEN
  2. VALERIAN [Concomitant]
     Active Substance: VALERIAN
  3. STAVZOR [Concomitant]
     Active Substance: VALPROIC ACID
  4. VIAGRA [Concomitant]
     Active Substance: SILDENAFIL CITRATE
  5. VISTARIL [Concomitant]
     Active Substance: HYDROXYZINE PAMOATE
  6. PROPRANOLOL [Concomitant]
     Active Substance: PROPRANOLOL\PROPRANOLOL HYDROCHLORIDE
  7. VITAMINS [Concomitant]
     Active Substance: VITAMINS
  8. KLONOPIN [Concomitant]
     Active Substance: CLONAZEPAM
  9. DEPAKOTE [Concomitant]
     Active Substance: DIVALPROEX SODIUM
  10. XYREM [Suspect]
     Active Substance: SODIUM OXYBATE
     Dosage: 2.25 G, BID
     Route: 048
     Dates: start: 201211, end: 2014
  11. MELATONIN [Concomitant]
     Active Substance: MELATONIN
  12. PICAMILON [Concomitant]
  13. SEROQUEL [Concomitant]
     Active Substance: QUETIAPINE FUMARATE
  14. TYROSINE [Concomitant]
     Active Substance: TYROSINE
  15. VALIUM [Concomitant]
     Active Substance: DIAZEPAM
  16. XYREM [Suspect]
     Active Substance: SODIUM OXYBATE
     Indication: SLEEP DISORDER
     Dosage: 3 G, FIRST DOSE
     Route: 048
     Dates: start: 200809, end: 2008
  17. XYREM [Suspect]
     Active Substance: SODIUM OXYBATE
     Dosage: 5 G, SECOND DOSE
     Route: 048
     Dates: start: 200809, end: 2008
  18. FLUMAZENIL. [Concomitant]
     Active Substance: FLUMAZENIL
  19. DOXEPIN [Concomitant]
     Active Substance: DOXEPIN
  20. GABITRIL [Concomitant]
     Active Substance: TIAGABINE HYDROCHLORIDE
  21. NEURONTIN [Concomitant]
     Active Substance: GABAPENTIN
  22. GLUTAMINE [Concomitant]
     Active Substance: GLUTAMINE
  23. TRILEPTAL [Concomitant]
     Active Substance: OXCARBAZEPINE
  24. HYDROCODONE BITARTRATE AND ACETAMINOPHEN [Concomitant]
     Active Substance: ACETAMINOPHEN\HYDROCODONE BITARTRATE
  25. ARSENICUM [Concomitant]
  26. LIBRIUM [Concomitant]
     Active Substance: CHLORDIAZEPOXIDE HYDROCHLORIDE
  27. ZANAFLEX [Concomitant]
     Active Substance: TIZANIDINE HYDROCHLORIDE
  28. NORCO [Concomitant]
     Active Substance: ACETAMINOPHEN\HYDROCODONE BITARTRATE
  29. KETOROLAC [Concomitant]
     Active Substance: KETOROLAC\KETOROLAC TROMETHAMINE
  30. LAMICTAL [Concomitant]
     Active Substance: LAMOTRIGINE
  31. STRATTERA [Concomitant]
     Active Substance: ATOMOXETINE HYDROCHLORIDE
  32. MAGNESIUM PHOSPHATE [Concomitant]
     Active Substance: MAGNESIUM PHOSPHATE, TRIBASIC, PENTAHYDRATE
  33. PHENOBARBITAL. [Concomitant]
     Active Substance: PHENOBARBITAL

REACTIONS (1)
  - Unevaluable event [Unknown]
